FAERS Safety Report 6488090-6 (Version None)
Quarter: 2009Q4

REPORT INFORMATION
  Report Type: 
  Country: None (occurrence: None)
  Receive Date: 20091123
  Receipt Date: 20091015
  Transmission Date: 20100525
  Serious: No
  Sender: FDA-Public Use
  Company Number: 8053364

PATIENT
  Age: 55 Year
  Sex: Female
  Weight: 60.9 kg

DRUGS (12)
  1. CIMZIA [Suspect]
     Indication: PSORIASIS
     Dosage: 200 MG 1/2W SC
     Route: 058
     Dates: start: 20091009
  2. CIMZIA [Suspect]
     Indication: RHEUMATOID ARTHRITIS
     Dosage: 200 MG 1/2W SC
     Route: 058
     Dates: start: 20091009
  3. TRIAMCINOLONE HEXACETONIDE [Concomitant]
  4. DERMASMOOTH FS [Concomitant]
  5. ELIDEL [Concomitant]
  6. CLOBEX [Concomitant]
  7. LIDOCAINE HYDROCHLORIDE JELLY [Concomitant]
  8. XANAX [Concomitant]
  9. VITAMIN B-12 [Concomitant]
  10. ALBUTEROL [Concomitant]
  11. EPIPEN [Concomitant]
  12. METHOTREXATE [Concomitant]

REACTIONS (1)
  - PRURITUS [None]
